FAERS Safety Report 13515660 (Version 1)
Quarter: 2017Q2

REPORT INFORMATION
  Report Type: Spontaneous
  Country: US (occurrence: US)
  Receive Date: 20170504
  Receipt Date: 20170504
  Transmission Date: 20170830
  Serious: Yes (Death, Hospitalization)
  Sender: FDA-Public Use
  Company Number: US-BIOMARINAP-US-2017-113867

PATIENT
  Age: 28 Year
  Sex: Male

DRUGS (2)
  1. LASIX [Concomitant]
     Active Substance: FUROSEMIDE
     Indication: DYSPNOEA
     Dosage: 80 MG, QD
     Route: 048
     Dates: start: 2017
  2. ALDURAZYME [Suspect]
     Active Substance: LARONIDASE
     Indication: MUCOPOLYSACCHARIDOSIS I
     Dosage: UNK
     Route: 042
     Dates: start: 20170413

REACTIONS (25)
  - Gastrointestinal haemorrhage [Unknown]
  - Haemorrhagic anaemia [Unknown]
  - Respiratory distress [Fatal]
  - Pyrexia [Not Recovered/Not Resolved]
  - Heart rate increased [Not Recovered/Not Resolved]
  - Foaming at mouth [Unknown]
  - Pulseless electrical activity [Unknown]
  - Haemoptysis [Unknown]
  - Pulmonary haemorrhage [Unknown]
  - Loss of consciousness [Not Recovered/Not Resolved]
  - Tachypnoea [Unknown]
  - Grunting [Unknown]
  - Cerebrovascular accident [Unknown]
  - Respiratory tract haemorrhage [Unknown]
  - Echocardiogram abnormal [Not Recovered/Not Resolved]
  - Productive cough [Not Recovered/Not Resolved]
  - Oedema peripheral [Not Recovered/Not Resolved]
  - Abdominal distension [Not Recovered/Not Resolved]
  - Dyspnoea [Unknown]
  - Right ventricular dilatation [Unknown]
  - Rhinorrhoea [Not Recovered/Not Resolved]
  - Ill-defined disorder [Not Recovered/Not Resolved]
  - Brain natriuretic peptide abnormal [Not Recovered/Not Resolved]
  - Liver function test abnormal [Not Recovered/Not Resolved]
  - Poor venous access [Not Recovered/Not Resolved]

NARRATIVE: CASE EVENT DATE: 20170424
